FAERS Safety Report 16575104 (Version 1)
Quarter: 2019Q3

REPORT INFORMATION
  Report Type: Spontaneous
  Country: DE (occurrence: DE)
  Receive Date: 20190715
  Receipt Date: 20190715
  Transmission Date: 20191004
  Serious: Yes (Hospitalization, Other)
  Sender: FDA-Public Use
  Company Number: PHHY2019DE107924

PATIENT
  Sex: Male
  Weight: 95.96 kg

DRUGS (9)
  1. ASPIRIN. [Concomitant]
     Active Substance: ASPIRIN
     Indication: PROPHYLAXIS
     Dosage: 100 MG, QD
     Route: 048
     Dates: start: 2011
  2. VOTRIENT [Suspect]
     Active Substance: PAZOPANIB HYDROCHLORIDE
     Dosage: 400 MG, QD (200 TO 400 MG)
     Route: 048
     Dates: start: 201512, end: 201601
  3. SALBUTAMOL [Concomitant]
     Active Substance: ALBUTEROL
     Indication: PRODUCT USED FOR UNKNOWN INDICATION
     Dosage: UNK (AS REQUIRED)
     Route: 065
  4. VOTRIENT [Suspect]
     Active Substance: PAZOPANIB HYDROCHLORIDE
     Dosage: 400 MG, QD
     Route: 048
     Dates: start: 20160306
  5. BRILIQUE [Concomitant]
     Active Substance: TICAGRELOR
     Indication: PRODUCT USED FOR UNKNOWN INDICATION
     Dosage: 90 MG, BID
     Route: 065
  6. VOTUM [Concomitant]
     Indication: PRODUCT USED FOR UNKNOWN INDICATION
     Dosage: 5 MG, UNK
     Route: 065
  7. VOTRIENT [Suspect]
     Active Substance: PAZOPANIB HYDROCHLORIDE
     Indication: RENAL CELL CARCINOMA
     Dosage: 400 MG, BID
     Route: 048
     Dates: start: 201506, end: 201512
  8. INSULIN [Concomitant]
     Active Substance: INSULIN NOS
     Indication: PRODUCT USED FOR UNKNOWN INDICATION
     Dosage: UNK (AS REQUIRED)
     Route: 065
  9. OLMESARTAN [Concomitant]
     Active Substance: OLMESARTAN
     Indication: PRODUCT USED FOR UNKNOWN INDICATION
     Dosage: 10 MG, QD
     Route: 065

REACTIONS (19)
  - Acute myocardial infarction [Recovered/Resolved]
  - Scar [Unknown]
  - Malnutrition [Unknown]
  - Joint ankylosis [Unknown]
  - Dyspnoea [Unknown]
  - Fatigue [Unknown]
  - Incision site oedema [Unknown]
  - Spinal osteoarthritis [Unknown]
  - Chest discomfort [Unknown]
  - Inguinal hernia [Unknown]
  - Ventricular dysfunction [Unknown]
  - Hepatic enzyme increased [Unknown]
  - Hyperhidrosis [Unknown]
  - Pallor [Unknown]
  - General physical health deterioration [Unknown]
  - Coronary artery disease [Unknown]
  - Pain in extremity [Unknown]
  - Diverticulum intestinal [Unknown]
  - Chest pain [Unknown]

NARRATIVE: CASE EVENT DATE: 201509
